FAERS Safety Report 11206176 (Version 1)
Quarter: 2015Q2

REPORT INFORMATION
  Report Type: Spontaneous
  Country: US (occurrence: None)
  Receive Date: 20150618
  Receipt Date: 20150618
  Transmission Date: 20150821
  Serious: Yes (Other)
  Sender: FDA-Public Use
  Company Number: None

PATIENT
  Age: 57 Year
  Sex: Male
  Weight: 86.18 kg

DRUGS (4)
  1. SNINUS SPRAY [Concomitant]
  2. CEFDINIR. [Suspect]
     Active Substance: CEFDINIR
     Indication: SINUSITIS
     Dosage: 2 CAPSULE
     Route: 048
     Dates: start: 20150304, end: 20150612
  3. ADVIL [Concomitant]
     Active Substance: IBUPROFEN
  4. IBUPROFEN. [Concomitant]
     Active Substance: IBUPROFEN

REACTIONS (5)
  - Peripheral swelling [None]
  - Dyspnoea [None]
  - Urticaria [None]
  - Hypoaesthesia [None]
  - Chest discomfort [None]

NARRATIVE: CASE EVENT DATE: 20150604
